FAERS Safety Report 10610840 (Version 1)
Quarter: 2014Q4

REPORT INFORMATION
  Report Type: Spontaneous
  Country: SG (occurrence: SG)
  Receive Date: 20141126
  Receipt Date: 20141126
  Transmission Date: 20150529
  Serious: Yes (Other)
  Sender: FDA-Public Use
  Company Number: SG-BAYER-2014-174267

PATIENT
  Age: 68 Year
  Sex: Female

DRUGS (1)
  1. ACARBOSE. [Suspect]
     Active Substance: ACARBOSE
     Dosage: UNK

REACTIONS (1)
  - Palpitations [Unknown]

NARRATIVE: CASE EVENT DATE: 20140403
